FAERS Safety Report 7649974-6 (Version None)
Quarter: 2011Q3

REPORT INFORMATION
  Report Type: 
  Country: None (occurrence: None)
  Receive Date: 20110802
  Receipt Date: 20110725
  Transmission Date: 20111222
  Serious: Yes (Hospitalization)
  Sender: FDA-Public Use
  Company Number: BR-JNJFOC-20110510457

PATIENT
  Sex: Male
  Weight: 20 kg

DRUGS (8)
  1. HIXIZINE [Concomitant]
     Indication: ANTIALLERGIC THERAPY
     Dosage: 20 DROPS
     Route: 048
     Dates: start: 20110501
  2. DEXCHLORPHENIRAMINE MALEATE [Concomitant]
     Indication: HYPERSENSITIVITY
     Route: 048
     Dates: start: 20110501, end: 20110501
  3. REVITA JR (VITAMIN SUPPLEMENT) [Concomitant]
     Route: 048
  4. NISTATINA [Concomitant]
     Indication: RASH
     Dosage: 20 DROPS
     Route: 061
     Dates: start: 20110501
  5. MYLANTA PLUS [Suspect]
     Indication: STOMATITIS
     Dosage: 5-10 ML
     Route: 048
     Dates: start: 20110510, end: 20110512
  6. RANITIDINE [Concomitant]
     Indication: STOMATITIS
     Route: 048
     Dates: start: 20110401, end: 20110501
  7. FLAGASS [Concomitant]
     Indication: FLATULENCE
     Route: 048
     Dates: start: 20110501, end: 20110501
  8. MYLANTA PLUS [Suspect]
     Indication: ABDOMINAL DISCOMFORT
     Dosage: 5-10 ML
     Route: 048
     Dates: start: 20110510, end: 20110512

REACTIONS (9)
  - URINARY TRACT INFECTION [None]
  - BLISTER [None]
  - WRONG DRUG ADMINISTERED [None]
  - ORTHOSTATIC HYPOTENSION [None]
  - HYPERSENSITIVITY [None]
  - SOMNOLENCE [None]
  - SKIN EXFOLIATION [None]
  - ABDOMINAL PAIN [None]
  - BLOOD GLUCOSE DECREASED [None]
